FAERS Safety Report 10421487 (Version 1)
Quarter: 2014Q3

REPORT INFORMATION
  Report Type: Spontaneous
  Country: US (occurrence: US)
  Receive Date: 20140901
  Receipt Date: 20140901
  Transmission Date: 20150326
  Serious: Yes (Other)
  Sender: FDA-Public Use
  Company Number: US-AMGEN INC.-USASP2014065345

PATIENT
  Age: 56 Year
  Sex: Female

DRUGS (1)
  1. ENBREL [Suspect]
     Active Substance: ETANERCEPT
     Indication: RHEUMATOID ARTHRITIS
     Dosage: UNK
     Route: 065
     Dates: start: 2005

REACTIONS (5)
  - Limb operation [Recovered/Resolved]
  - Joint effusion [Not Recovered/Not Resolved]
  - Wrist surgery [Unknown]
  - General symptom [Not Recovered/Not Resolved]
  - Synovial cyst [Unknown]

NARRATIVE: CASE EVENT DATE: 2013
